FAERS Safety Report 5961781-9 (Version None)
Quarter: 2008Q4

REPORT INFORMATION
  Report Type: 
  Country: None (occurrence: None)
  Receive Date: 20081121
  Receipt Date: 20081117
  Transmission Date: 20090506
  Serious: Yes (Other)
  Sender: FDA-Public Use
  Company Number: GB-MERCK-0811GBR00067

PATIENT
  Age: 38 Year
  Sex: Male
  Weight: 126 kg

DRUGS (8)
  1. SINGULAIR [Suspect]
     Indication: ASTHMA
     Route: 048
     Dates: start: 20080604, end: 20080601
  2. BECLOMETHASONE DIPROPIONATE [Concomitant]
  3. VALPROATE SODIUM [Concomitant]
     Route: 065
  4. LANSOPRAZOLE [Concomitant]
     Indication: DYSPEPSIA
     Route: 065
  5. RAMIPRIL [Concomitant]
     Indication: HYPERTENSION
     Route: 065
  6. FLUTICASONE PROPIONATE AND SALMETEROL XINAFOATE [Concomitant]
  7. CROMOLYN SODIUM [Concomitant]
     Indication: SEASONAL ALLERGY
     Route: 065
  8. ALBUTEROL [Concomitant]
     Indication: DYSPNOEA

REACTIONS (2)
  - DEPRESSION [None]
  - SUICIDAL IDEATION [None]
